FAERS Safety Report 17783650 (Version 2)
Quarter: 2020Q2

REPORT INFORMATION
  Report Type: Spontaneous
  Country: US (occurrence: US)
  Receive Date: 20200514
  Receipt Date: 20200515
  Transmission Date: 20200714
  Serious: No
  Sender: FDA-Public Use
  Company Number: US-PFIZER INC-2020192019

PATIENT
  Sex: Female

DRUGS (2)
  1. CBD OIL [Suspect]
     Active Substance: CANNABIDIOL\HERBALS
     Dosage: UNK
  2. FLUCONAZOLE. [Suspect]
     Active Substance: FLUCONAZOLE
     Dosage: UNK

REACTIONS (9)
  - Nervousness [Unknown]
  - Dizziness [Unknown]
  - Hypotension [Unknown]
  - Poor quality sleep [Unknown]
  - Psychomotor hyperactivity [Unknown]
  - Abdominal distension [Unknown]
  - Heart rate decreased [Unknown]
  - Anxiety [Unknown]
  - Decreased appetite [Unknown]
